FAERS Safety Report 22095578 (Version 2)
Quarter: 2024Q1

REPORT INFORMATION
  Report Type: Spontaneous
  Country: US (occurrence: US)
  Receive Date: 20230314
  Receipt Date: 20240306
  Transmission Date: 20240410
  Serious: No
  Sender: FDA-Public Use
  Company Number: US-009507513-2303USA004625

PATIENT
  Age: 6 Year
  Sex: Female

DRUGS (1)
  1. TEMODAR [Suspect]
     Active Substance: TEMOZOLOMIDE
     Indication: Astroblastoma
     Dosage: FOR SECOND RECURRENCE

REACTIONS (1)
  - Product use in unapproved indication [Unknown]
